FAERS Safety Report 8394917-3 (Version None)
Quarter: 2012Q2

REPORT INFORMATION
  Report Type: 
  Country: None (occurrence: None)
  Receive Date: 20120530
  Receipt Date: 20110613
  Transmission Date: 20120825
  Serious: No
  Sender: FDA-Public Use
  Company Number: US-GLAXOSMITHKLINE-A0932537A

PATIENT
  Age: 72 Year
  Sex: Male
  Weight: 96.5 kg

DRUGS (7)
  1. NIACIN [Concomitant]
     Dosage: 500MG PER DAY
     Route: 065
  2. FLOLAN [Suspect]
     Indication: COR PULMONALE CHRONIC
     Dosage: 19NGKM UNKNOWN
     Route: 065
     Dates: start: 20010621
  3. WARFARIN SODIUM [Concomitant]
     Route: 065
  4. CEFTIN [Concomitant]
     Dosage: 500MG TWICE PER DAY
     Route: 065
  5. COZAAR [Concomitant]
     Dosage: 100MG PER DAY
     Route: 065
  6. BUMETANIDE [Concomitant]
     Dosage: 1MG PER DAY
     Route: 065
  7. MULTI-VITAMIN [Concomitant]
     Route: 065

REACTIONS (1)
  - SINUSITIS [None]
